FAERS Safety Report 21766719 (Version 3)
Quarter: 2023Q1

REPORT INFORMATION
  Report Type: Spontaneous
  Country: CA (occurrence: CA)
  Receive Date: 20221222
  Receipt Date: 20230202
  Transmission Date: 20230418
  Serious: Yes (Other)
  Sender: FDA-Public Use
  Company Number: CA-PFIZER INC-202201380931

PATIENT
  Age: 2 Year
  Sex: Female
  Weight: 10 kg

DRUGS (2)
  1. ABRILADA [Suspect]
     Active Substance: ADALIMUMAB-AFZB
     Indication: Juvenile idiopathic arthritis
     Dosage: 20 MG, EVERY 2 WEEKS
     Route: 058
     Dates: start: 20221215
  2. ABRILADA [Suspect]
     Active Substance: ADALIMUMAB-AFZB
     Dosage: 20 MG, EVERY 2 WEEKS
     Route: 058
     Dates: start: 20221230

REACTIONS (7)
  - Hypertension [Not Recovered/Not Resolved]
  - Tachycardia [Unknown]
  - Heart rate increased [Unknown]
  - Injection site erythema [Recovering/Resolving]
  - Injection site pain [Recovered/Resolved]
  - Hyperthermia [Unknown]
  - Influenza [Unknown]

NARRATIVE: CASE EVENT DATE: 20221215
